FAERS Safety Report 10182996 (Version 1)
Quarter: 2014Q2

REPORT INFORMATION
  Report Type: Spontaneous
  Country: US (occurrence: US)
  Receive Date: 20140520
  Receipt Date: 20140520
  Transmission Date: 20141212
  Serious: Yes (Other)
  Sender: FDA-Public Use
  Company Number: US-PFIZER INC-2014136116

PATIENT
  Sex: Male

DRUGS (2)
  1. NEURONTIN [Suspect]
     Indication: CONVULSION
     Dosage: UNK
  2. VIMPAT [Suspect]
     Indication: CONVULSION
     Dosage: UNK

REACTIONS (1)
  - Weight increased [Not Recovered/Not Resolved]
